FAERS Safety Report 18799996 (Version 1)
Quarter: 2021Q1

REPORT INFORMATION
  Report Type: Spontaneous
  Country: US (occurrence: US)
  Receive Date: 20210127
  Receipt Date: 20210127
  Transmission Date: 20210419
  Serious: No
  Sender: FDA-Public Use
  Company Number: None

PATIENT
  Age: 54 Year
  Sex: Male
  Weight: 65.25 kg

DRUGS (1)
  1. LIDOCAINE 23%/TETRACAINE 7% (LIPO110) OINTMENT [Suspect]
     Active Substance: LIDOCAINE HYDROCHLORIDE\TETRACAINE
     Indication: LOCAL ANAESTHESIA
     Dosage: ?          OTHER FREQUENCY:1X APPLICATION;?
     Route: 061

REACTIONS (5)
  - Hypersensitivity [None]
  - Loss of consciousness [None]
  - Feeling drunk [None]
  - Dyspnoea [None]
  - Product quality issue [None]

NARRATIVE: CASE EVENT DATE: 20210107
